FAERS Safety Report 4413031-2 (Version None)
Quarter: 2004Q3

REPORT INFORMATION
  Report Type: 
  Country: None (occurrence: None)
  Receive Date: 20040730
  Receipt Date: 20040730
  Transmission Date: 20050211
  Serious: Yes (Hospitalization)
  Sender: FDA-Public Use
  Company Number: None

PATIENT
  Age: 58 Year
  Sex: Male
  Weight: 123.832 kg

DRUGS (3)
  1. ASPIRIN [Suspect]
     Indication: CORONARY ARTERY DISEASE
     Dates: start: 20040201, end: 20040614
  2. ASPIRIN [Suspect]
     Indication: PERIPHERAL VASCULAR DISORDER
     Dates: start: 20040201, end: 20040614
  3. CLOPIDOGREL 75 MG DAILY [Suspect]
     Dates: start: 20040201, end: 20040614

REACTIONS (1)
  - GASTROINTESTINAL HAEMORRHAGE [None]
